FAERS Safety Report 7509010-9 (Version None)
Quarter: 2011Q2

REPORT INFORMATION
  Report Type: 
  Country: None (occurrence: None)
  Receive Date: 20110527
  Receipt Date: 20110519
  Transmission Date: 20111010
  Serious: Yes (Other)
  Sender: FDA-Public Use
  Company Number: BR-SANOFI-AVENTIS-2011SA031571

PATIENT
  Sex: Male

DRUGS (4)
  1. LANTUS [Suspect]
     Indication: NEONATAL DIABETES MELLITUS
     Route: 058
  2. PREDNISOLONE [Suspect]
     Indication: PNEUMONIA
     Dosage: UNIT DOSE 3 MG/ML, DAILY DOSE 2 ML
     Route: 048
     Dates: start: 20110501, end: 20110501
  3. AUTOPEN 24 [Suspect]
  4. ALL OTHER THERAPEUTIC PRODUCTS [Suspect]
     Indication: PNEUMONIA
     Dosage: 600 MG/ML UNIT DOSE, DAILY DOSE 2 ML
     Route: 048
     Dates: start: 20110501, end: 20110501

REACTIONS (3)
  - PNEUMONIA [None]
  - OFF LABEL USE [None]
  - HYPERGLYCAEMIA [None]
